FAERS Safety Report 8948508 (Version 1)
Quarter: 2012Q4

REPORT INFORMATION
  Report Type: Spontaneous
  Country: GB (occurrence: None)
  Receive Date: 20121123
  Receipt Date: 20121123
  Transmission Date: 20130627
  Serious: Yes (Life-Threatening)
  Sender: FDA-Public Use
  Company Number: 1485287

PATIENT
  Age: 20 Year
  Sex: Female

DRUGS (2)
  1. METHOTREXATE [Suspect]
     Indication: PSORIASIS VULGARIS
     Dates: start: 20120401, end: 20121015
  2. FOLIC ACID [Concomitant]

REACTIONS (2)
  - Syncope [None]
  - Complex partial seizures [None]
